FAERS Safety Report 4364738-7 (Version None)
Quarter: 2004Q2

REPORT INFORMATION
  Report Type: 
  Country: None (occurrence: None)
  Receive Date: 20040518
  Receipt Date: 20040324
  Transmission Date: 20050107
  Serious: Yes (Other)
  Sender: FDA-Public Use
  Company Number: PHEH2003US09839

PATIENT
  Age: 63 Year
  Sex: Female
  Weight: 66.2 kg

DRUGS (4)
  1. GLEEVEC [Suspect]
     Indication: CHRONIC MYELOID LEUKAEMIA
     Dosage: 400 MG, QD, ORAL
     Route: 048
     Dates: start: 20030901
  2. CELEBREX [Concomitant]
  3. INDERAL [Concomitant]
  4. HYDROCHLOROTHIAZIDE [Concomitant]

REACTIONS (12)
  - ARTHRALGIA [None]
  - BLOOD BLISTER [None]
  - BLOOD CHOLESTEROL INCREASED [None]
  - CHRONIC MYELOID LEUKAEMIA [None]
  - DEPRESSION [None]
  - DIARRHOEA [None]
  - EYE HAEMORRHAGE [None]
  - EYE PAIN [None]
  - FATIGUE [None]
  - PERIORBITAL OEDEMA [None]
  - RASH [None]
  - RECURRENT CANCER [None]
